FAERS Safety Report 8403004-7 (Version None)
Quarter: 2012Q2

REPORT INFORMATION
  Report Type: 
  Country: None (occurrence: None)
  Receive Date: 20120601
  Receipt Date: 20120529
  Transmission Date: 20120825
  Serious: Yes (Other)
  Sender: FDA-Public Use
  Company Number: US-PFIZER INC-2012129756

PATIENT
  Sex: Female

DRUGS (3)
  1. AMOXICILLIN [Suspect]
     Indication: TOOTHACHE
     Dosage: 500 MG, 3X/DAY
     Dates: start: 20120101, end: 20120101
  2. LYRICA [Suspect]
     Indication: DIABETIC NEUROPATHY
     Dosage: 75 MG, 2X/DAY
     Route: 048
     Dates: start: 20050101, end: 20050101
  3. LYRICA [Suspect]
     Dosage: 75 MG, DAILY
     Route: 048
     Dates: start: 20050101, end: 20120501

REACTIONS (6)
  - PAIN IN EXTREMITY [None]
  - ERYTHEMA [None]
  - BURNING SENSATION [None]
  - TOOTHACHE [None]
  - TOOTH INFECTION [None]
  - GAIT DISTURBANCE [None]
